FAERS Safety Report 4596780-5 (Version None)
Quarter: 2005Q1

REPORT INFORMATION
  Report Type: 
  Country: None (occurrence: None)
  Receive Date: 20050302
  Receipt Date: 20041220
  Transmission Date: 20050727
  Serious: Yes (Hospitalization, Other)
  Sender: FDA-Public Use
  Company Number: US-AMGEN-KDL107799

PATIENT
  Sex: Female

DRUGS (3)
  1. ENBREL [Suspect]
     Indication: RHEUMATOID ARTHRITIS
     Route: 058
     Dates: start: 20030723, end: 20040715
  2. PREDNISONE [Concomitant]
  3. METHOTREXATE [Concomitant]

REACTIONS (6)
  - ABSCESS SOFT TISSUE [None]
  - CARDIAC FAILURE CONGESTIVE [None]
  - INFECTED CYST [None]
  - INFECTION [None]
  - PERICARDIAL EFFUSION [None]
  - SEPSIS [None]
